FAERS Safety Report 19145175 (Version 1)
Quarter: 2021Q2

REPORT INFORMATION
  Report Type: Spontaneous
  Country: US (occurrence: US)
  Receive Date: 20210416
  Receipt Date: 20210416
  Transmission Date: 20210717
  Serious: Yes (Other)
  Sender: FDA-Public Use
  Company Number: US-MYLANLABS-2021M1021952

PATIENT
  Age: 57 Year
  Sex: Female

DRUGS (1)
  1. PREDNISONE. [Suspect]
     Active Substance: PREDNISONE
     Indication: PARANEOPLASTIC PEMPHIGUS
     Dosage: SLOW PREDNISONE TAPER
     Route: 065

REACTIONS (1)
  - Drug ineffective [Unknown]
